FAERS Safety Report 24554581 (Version 5)
Quarter: 2025Q2

REPORT INFORMATION
  Report Type: Report from Study
  Country: CA (occurrence: CA)
  Receive Date: 20241028
  Receipt Date: 20250423
  Transmission Date: 20250717
  Serious: Yes (Death, Other)
  Sender: ABBVIE
  Company Number: CA-ABBVIE-5976599

PATIENT
  Age: 62 Year
  Sex: Male
  Weight: 80 kg

DRUGS (20)
  1. VENCLEXTA [Suspect]
     Active Substance: VENETOCLAX
     Indication: Acute myeloid leukaemia
     Route: 048
     Dates: start: 20240916
  2. VENCLEXTA [Suspect]
     Active Substance: VENETOCLAX
     Indication: Acute myeloid leukaemia
     Route: 048
     Dates: start: 2024, end: 2024
  3. VENCLEXTA [Suspect]
     Active Substance: VENETOCLAX
     Indication: Acute myeloid leukaemia
     Dosage: FORM STRENGTH: 100 MILLIGRAM.
     Route: 048
     Dates: start: 20241028, end: 202412
  4. MICAFUNGIN [Concomitant]
     Active Substance: MICAFUNGIN SODIUM
     Indication: Antifungal prophylaxis
     Dates: start: 202407, end: 202408
  5. PIPERACILLIN AND TAZOBACTAM [Concomitant]
     Active Substance: PIPERACILLIN SODIUM\TAZOBACTAM SODIUM
     Indication: Rectal abscess
     Route: 042
     Dates: start: 202407, end: 202408
  6. DALTEPARIN [Concomitant]
     Active Substance: DALTEPARIN
     Indication: Atrial fibrillation
     Route: 058
     Dates: start: 202407
  7. AZACITIDINE [Concomitant]
     Active Substance: AZACITIDINE
     Indication: Acute myeloid leukaemia
     Route: 058
     Dates: start: 202408
  8. ROSUVASTATIN [Concomitant]
     Active Substance: ROSUVASTATIN
     Indication: Dyslipidaemia
     Route: 048
  9. CLOPIDOGREL [Concomitant]
     Active Substance: CLOPIDOGREL BISULFATE
     Indication: Coronary artery disease
     Route: 048
     Dates: start: 202404
  10. FINASTERIDE [Concomitant]
     Active Substance: FINASTERIDE
     Indication: Benign prostatic hyperplasia
     Route: 048
  11. FINASTERIDE [Concomitant]
     Active Substance: FINASTERIDE
     Indication: Benign prostatic hyperplasia
  12. ESOMEPRAZOLE [Concomitant]
     Active Substance: ESOMEPRAZOLE
     Indication: Gastrooesophageal reflux disease
     Dates: end: 202411
  13. ESOMEPRAZOLE [Concomitant]
     Active Substance: ESOMEPRAZOLE
     Indication: Gastrooesophageal reflux disease
  14. TAMSULOSIN [Concomitant]
     Active Substance: TAMSULOSIN
     Indication: Benign prostatic hyperplasia
     Route: 048
  15. POSACONAZOLE [Concomitant]
     Active Substance: POSACONAZOLE
     Indication: Product used for unknown indication
     Route: 048
     Dates: start: 202408
  16. DASATINIB [Concomitant]
     Active Substance: DASATINIB
     Indication: Product used for unknown indication
     Route: 048
     Dates: start: 20241104
  17. VALACYCLOVIR [Concomitant]
     Active Substance: VALACYCLOVIR HYDROCHLORIDE
     Indication: Product used for unknown indication
     Route: 048
     Dates: start: 202407
  18. LEVOFLOXACIN [Concomitant]
     Active Substance: LEVOFLOXACIN
     Indication: Product used for unknown indication
     Route: 048
     Dates: start: 202408
  19. IMATINIB [Concomitant]
     Active Substance: IMATINIB
     Indication: Product used for unknown indication
     Dates: start: 202407
  20. IMATINIB [Concomitant]
     Active Substance: IMATINIB
     Indication: Product used for unknown indication
     Dates: start: 202410

REACTIONS (3)
  - Acute leukaemia [Fatal]
  - Pain [Not Recovered/Not Resolved]
  - Anal abscess [Recovered/Resolved]

NARRATIVE: CASE EVENT DATE: 20241016
